FAERS Safety Report 7933410-6 (Version None)
Quarter: 2011Q4

REPORT INFORMATION
  Report Type: 
  Country: None (occurrence: None)
  Receive Date: 20111122
  Receipt Date: 20111122
  Transmission Date: 20120403
  Serious: Yes (Other)
  Sender: FDA-Public Use
  Company Number: None

PATIENT
  Age: 57 Year
  Sex: Female
  Weight: 76.657 kg

DRUGS (1)
  1. AMOXICILLIN AND CLAVULANATE POTASSIUM [Suspect]
     Indication: SINUSITIS
     Dosage: 875-125 MG TAB
     Route: 048
     Dates: start: 20111121, end: 20111121

REACTIONS (4)
  - VOMITING [None]
  - ABDOMINAL PAIN UPPER [None]
  - CHROMATURIA [None]
  - DIARRHOEA [None]
